FAERS Safety Report 10092550 (Version 1)
Quarter: 2014Q2

REPORT INFORMATION
  Report Type: Spontaneous
  Country: US (occurrence: US)
  Receive Date: 20140421
  Receipt Date: 20140421
  Transmission Date: 20141212
  Serious: No
  Sender: FDA-Public Use
  Company Number: US-SANOFI-AVENTIS-2013SA040978

PATIENT
  Age: 64 Year
  Sex: Female
  Weight: 66.22 kg

DRUGS (2)
  1. ALLEGRA [Suspect]
     Indication: HYPERSENSITIVITY
     Route: 048
     Dates: start: 20130401, end: 20130403
  2. CLARITIN [Concomitant]
     Indication: HYPERSENSITIVITY

REACTIONS (4)
  - Eye pruritus [Recovered/Resolved]
  - Lacrimation increased [Recovered/Resolved]
  - Pruritus [Recovered/Resolved]
  - Flushing [Recovered/Resolved]
